FAERS Safety Report 9748547 (Version 1)
Quarter: 2013Q4

REPORT INFORMATION
  Report Type: Spontaneous
  Country: US (occurrence: US)
  Receive Date: 20131212
  Receipt Date: 20131212
  Transmission Date: 20140711
  Serious: No
  Sender: FDA-Public Use
  Company Number: US-009507513-1312USA005594

PATIENT
  Sex: Female

DRUGS (2)
  1. OXYTROL FOR WOMEN [Suspect]
     Indication: PRODUCT USED FOR UNKNOWN INDICATION
     Dosage: UNK UNK, UNKNOWN
     Route: 062
     Dates: start: 201309
  2. OXYTROL FOR WOMEN [Suspect]
     Dosage: UNK
     Route: 062
     Dates: start: 201311

REACTIONS (2)
  - Application site erythema [Unknown]
  - Application site pruritus [Unknown]
